FAERS Safety Report 13416450 (Version 1)
Quarter: 2017Q2

REPORT INFORMATION
  Report Type: Spontaneous
  Country: US (occurrence: US)
  Receive Date: 20170406
  Receipt Date: 20170406
  Transmission Date: 20170830
  Serious: Yes (Hospitalization, Other)
  Sender: FDA-Public Use
  Company Number: US-TEVA-756495USA

PATIENT
  Age: 61 Year
  Sex: Female
  Weight: 56.75 kg

DRUGS (2)
  1. NUVIGIL [Suspect]
     Active Substance: ARMODAFINIL
     Indication: FATIGUE
     Route: 065
     Dates: start: 2007, end: 201606
  2. ARMODAFINIL. [Suspect]
     Active Substance: ARMODAFINIL
     Route: 065

REACTIONS (3)
  - Pain [Unknown]
  - Pneumonia [Unknown]
  - Exostosis [Unknown]

NARRATIVE: CASE EVENT DATE: 201501
